FAERS Safety Report 18018249 (Version 5)
Quarter: 2020Q4

REPORT INFORMATION
  Report Type: Report from Study
  Country: None (occurrence: DE)
  Receive Date: 20200713
  Receipt Date: 20201024
  Transmission Date: 20210113
  Serious: Yes (Hospitalization, Other)
  Sender: FDA-Public Use
  Company Number: DE-ABBVIE-20K-062-3476267-00

PATIENT
  Age: 21 Year
  Sex: Male
  Weight: 60 kg

DRUGS (20)
  1. HUMIRA [Suspect]
     Active Substance: ADALIMUMAB
     Indication: CROHN^S DISEASE
     Route: 058
     Dates: start: 20130612, end: 20161121
  2. PARACETAMOL [Concomitant]
     Active Substance: ACETAMINOPHEN
     Indication: PROCEDURAL PAIN
     Route: 048
     Dates: start: 20190131
  3. GRANISETRON [Concomitant]
     Active Substance: GRANISETRON
     Route: 041
     Dates: start: 20190215
  4. GRANISETRON [Concomitant]
     Active Substance: GRANISETRON
     Route: 041
     Dates: start: 20190225
  5. CLEXANE [Concomitant]
     Active Substance: ENOXAPARIN SODIUM
     Indication: THROMBOSIS PROPHYLAXIS
     Route: 058
     Dates: start: 20190217
  6. AMPHO MORONAL [Concomitant]
     Active Substance: AMPHOTERICIN B
     Indication: NON-HODGKIN^S LYMPHOMA
     Route: 048
     Dates: start: 20190215
  7. DEXAMETHASON [Concomitant]
     Active Substance: DEXAMETHASONE
     Route: 041
     Dates: start: 20190225, end: 20190226
  8. DEXAMETHASON [Concomitant]
     Active Substance: DEXAMETHASONE
     Route: 041
     Dates: start: 20190226
  9. MOVICOL [Concomitant]
     Active Substance: POLYETHYLENE GLYCOL 3350\POTASSIUM CHLORIDE\SODIUM BICARBONATE\SODIUM CHLORIDE
     Indication: CONSTIPATION PROPHYLAXIS
     Route: 048
     Dates: start: 20190225
  10. FERRO-SANOL DUODENAL [Concomitant]
     Active Substance: FERROUS GLYCINE SULFATE
     Indication: BLOOD IRON DECREASED
     Route: 048
     Dates: start: 20091215
  11. GRANISETRON [Concomitant]
     Active Substance: GRANISETRON
     Indication: PROPHYLAXIS OF NAUSEA AND VOMITING
     Route: 041
     Dates: start: 20190220, end: 20190223
  12. USTEKINUMAB [Concomitant]
     Active Substance: USTEKINUMAB
     Indication: CROHN^S DISEASE
     Route: 041
     Dates: start: 20191206, end: 20191207
  13. PARACETAMOL [Concomitant]
     Active Substance: ACETAMINOPHEN
     Indication: PROCEDURAL PAIN
  14. ALLOPURINOL. [Concomitant]
     Active Substance: ALLOPURINOL
     Indication: NON-HODGKIN^S LYMPHOMA
     Route: 048
     Dates: start: 20190214
  15. DEXAMETHASON [Concomitant]
     Active Substance: DEXAMETHASONE
     Indication: LYMPHOMA
     Route: 041
     Dates: start: 20190224, end: 20190225
  16. VIGANTOLETTEN [Concomitant]
     Active Substance: CHOLECALCIFEROL
     Indication: CROHN^S DISEASE
     Route: 048
     Dates: start: 20130903
  17. VEDOLIZUMAB [Concomitant]
     Active Substance: VEDOLIZUMAB
     Indication: CROHN^S DISEASE
     Route: 041
     Dates: start: 20190417
  18. GRANISETRON [Concomitant]
     Active Substance: GRANISETRON
     Indication: LYMPHOMA
     Route: 041
     Dates: start: 20190223, end: 20190223
  19. HUMIRA [Suspect]
     Active Substance: ADALIMUMAB
     Route: 058
     Dates: start: 20161122, end: 20190213
  20. USTEKINUMAB [Concomitant]
     Active Substance: USTEKINUMAB
     Route: 058
     Dates: start: 20200131

REACTIONS (1)
  - Large intestinal stenosis [Recovered/Resolved]

NARRATIVE: CASE EVENT DATE: 20200604
